FAERS Safety Report 9133868 (Version 1)
Quarter: 2013Q1

REPORT INFORMATION
  Report Type: Spontaneous
  Country: US (occurrence: US)
  Receive Date: 20130127
  Receipt Date: 20130127
  Transmission Date: 20140127
  Serious: No
  Sender: FDA-Public Use
  Company Number: US-009507513-1301USA011138

PATIENT
  Age: 17 Year
  Sex: Female
  Weight: 117.91 kg

DRUGS (5)
  1. IMPLANON [Suspect]
     Indication: MENSTRUAL CYCLE MANAGEMENT
     Dosage: 1 ROD FOR 3 YEARS
     Route: 059
     Dates: start: 20120406
  2. TRAZODONE HYDROCHLORIDE [Concomitant]
  3. GEODON [Concomitant]
  4. LAMOTRIGINE [Concomitant]
  5. STRATTERA [Concomitant]

REACTIONS (1)
  - Menorrhagia [Unknown]
